FAERS Safety Report 7540190-5 (Version None)
Quarter: 2011Q2

REPORT INFORMATION
  Report Type: 
  Country: None (occurrence: None)
  Receive Date: 20110610
  Receipt Date: 20110530
  Transmission Date: 20111010
  Serious: Yes (Hospitalization)
  Sender: FDA-Public Use
  Company Number: KR-ELI_LILLY_AND_COMPANY-KR201103001288

PATIENT
  Sex: Female
  Weight: 67 kg

DRUGS (8)
  1. CRESTOR [Concomitant]
     Indication: HYPERLIPIDAEMIA
     Dates: start: 20060404
  2. LASIX [Concomitant]
     Indication: CARDIAC FAILURE
     Dates: start: 20090812
  3. SENSIVAL [Concomitant]
     Indication: DEPRESSION
     Dates: start: 20050816
  4. NOVOLOG [Concomitant]
     Indication: DIABETES MELLITUS
     Dates: start: 20050509
  5. THIOCTACID [Concomitant]
     Indication: NEURITIS
     Dates: start: 20050816
  6. EXENATIDE [Suspect]
     Indication: TYPE 2 DIABETES MELLITUS
     Dosage: 5 UG, BID
     Route: 058
     Dates: start: 20090730
  7. CARVEDILOL [Concomitant]
     Indication: HYPERTENSION
     Dates: start: 20090812
  8. ASPIRIN [Concomitant]
     Indication: CARDIAC DISORDER
     Dates: start: 20050523

REACTIONS (2)
  - NAUSEA [None]
  - VERTIGO [None]
